FAERS Safety Report 6528503-4 (Version None)
Quarter: 2009Q4

REPORT INFORMATION
  Report Type: 
  Country: None (occurrence: None)
  Receive Date: 20091222
  Receipt Date: 20090831
  Transmission Date: 20100525
  Serious: No
  Sender: FDA-Public Use
  Company Number: ALL1-2009-02541

PATIENT
  Age: 10 Year
  Sex: Male
  Weight: 39.9 kg

DRUGS (4)
  1. VYVANSE [Suspect]
     Indication: ATTENTION DEFICIT/HYPERACTIVITY DISORDER
     Dosage: 30 MG, 1X/DAY:QD, ORAL, 20 MG, 1X/DAY:QD, ORAL
     Route: 048
     Dates: start: 20081201, end: 20090201
  2. VYVANSE [Suspect]
     Indication: ATTENTION DEFICIT/HYPERACTIVITY DISORDER
     Dosage: 30 MG, 1X/DAY:QD, ORAL, 20 MG, 1X/DAY:QD, ORAL
     Route: 048
     Dates: start: 20090201
  3. TYLENOL/00020001/ (PARACETAMOL) [Concomitant]
  4. MOTRIN [Concomitant]

REACTIONS (9)
  - ANXIETY [None]
  - BLOOD CATECHOLAMINES ABNORMAL [None]
  - BLOOD GLUCOSE DECREASED [None]
  - BODY TEMPERATURE INCREASED [None]
  - DIPLOPIA [None]
  - FATIGUE [None]
  - HEADACHE [None]
  - PALLOR [None]
  - VISION BLURRED [None]
